FAERS Safety Report 4700524-3 (Version None)
Quarter: 2005Q2

REPORT INFORMATION
  Report Type: 
  Country: None (occurrence: None)
  Receive Date: 20050627
  Receipt Date: 20050627
  Transmission Date: 20051028
  Serious: Yes (Hospitalization)
  Sender: FDA-Public Use
  Company Number: None

PATIENT
  Sex: Female
  Weight: 54.1595 kg

DRUGS (12)
  1. METOLAZONE [Suspect]
     Indication: HYPERTENSION
     Dosage: 2.5MG   PO  ORAL
     Route: 048
     Dates: start: 20050519, end: 20050601
  2. TUSSTROL [Concomitant]
  3. SODIUM BICARB [Concomitant]
  4. TUMS [Concomitant]
  5. METROPROLOL [Concomitant]
  6. LASIX [Concomitant]
  7. LIPITOR [Concomitant]
  8. LISINOPRIL [Concomitant]
  9. NORVASC [Concomitant]
  10. GABAPENTIN [Concomitant]
  11. IRON SULPHATE [Concomitant]
  12. OXYBUTIN [Concomitant]

REACTIONS (2)
  - ASTHENIA [None]
  - FALL [None]
